FAERS Safety Report 9827538 (Version 1)
Quarter: 2014Q1

REPORT INFORMATION
  Report Type: Spontaneous
  Country: US (occurrence: US)
  Receive Date: 20140117
  Receipt Date: 20140117
  Transmission Date: 20141002
  Serious: No
  Sender: FDA-Public Use
  Company Number: US-BIOGENIDEC-2014BI001286

PATIENT
  Sex: Male

DRUGS (7)
  1. TECFIDERA [Suspect]
     Indication: MULTIPLE SCLEROSIS
     Route: 048
  2. SAW PALMETTO [Concomitant]
  3. VITAMIN C [Concomitant]
  4. B12 [Concomitant]
  5. ECHANASIA [Concomitant]
  6. XARELTO [Concomitant]
  7. CLONAZEPAM [Concomitant]

REACTIONS (4)
  - Urticaria [Unknown]
  - Pruritus [Unknown]
  - Feeling hot [Unknown]
  - Hot flush [Unknown]
